FAERS Safety Report 8955635 (Version 3)
Quarter: 2013Q1

REPORT INFORMATION
  Report Type: Report from Study
  Country: US (occurrence: US)
  Receive Date: 20121207
  Receipt Date: 20130130
  Transmission Date: 20140127
  Serious: No
  Sender: FDA-Public Use
  Company Number: US-VERTEX PHARMACEUTICALS INC.-2012-025689

PATIENT
  Age: 63 None
  Sex: Female
  Weight: 68 kg

DRUGS (5)
  1. VX-950 (TELAPREVIR) [Suspect]
     Indication: HEPATITIS C
     Dosage: 750 MG, TID
     Route: 048
     Dates: start: 20121109, end: 20130124
  2. COPEGUS [Suspect]
     Indication: HEPATITIS C
     Dosage: 600 MG, BID
     Route: 048
     Dates: start: 20121109
  3. COPEGUS [Suspect]
     Dosage: 200 MG, BID
     Route: 048
  4. COPEGUS [Suspect]
     Dosage: 600 UNK, UNK
     Route: 048
  5. PEGASYS [Suspect]
     Indication: HEPATITIS C
     Dosage: 180 ?G, QW
     Route: 058
     Dates: start: 20121109

REACTIONS (5)
  - Drug dose omission [Recovered/Resolved]
  - Sinusitis [Unknown]
  - Weight increased [Unknown]
  - Rash [Unknown]
  - Haemoglobin decreased [Recovered/Resolved]
